FAERS Safety Report 25611530 (Version 2)
Quarter: 2025Q4

REPORT INFORMATION
  Report Type: Spontaneous
  Country: BR (occurrence: BR)
  Receive Date: 20250728
  Receipt Date: 20251006
  Transmission Date: 20260118
  Serious: Yes (Other)
  Sender: NOVARTIS
  Company Number: BR-002147023-NVSC2025BR118836

PATIENT
  Sex: Male

DRUGS (1)
  1. COSENTYX [Suspect]
     Active Substance: SECUKINUMAB
     Indication: Psoriasis
     Dosage: UNK (MARCH)
     Route: 065

REACTIONS (3)
  - Uveitis [Unknown]
  - Erythema nodosum [Unknown]
  - Nodule [Unknown]

NARRATIVE: CASE EVENT DATE: 20250601
